FAERS Safety Report 19103704 (Version 2)
Quarter: 2021Q2

REPORT INFORMATION
  Report Type: Spontaneous
  Country: FR (occurrence: FR)
  Receive Date: 20210407
  Receipt Date: 20210419
  Transmission Date: 20210717
  Serious: Yes (Other)
  Sender: FDA-Public Use
  Company Number: FR-PFIZER INC-2021333316

PATIENT
  Age: 71 Year
  Sex: Female
  Weight: 70 kg

DRUGS (6)
  1. SEVOFLURANE. [Suspect]
     Active Substance: SEVOFLURANE
     Indication: SEDATION
     Dosage: 5 ML, FREQ:1 H
     Route: 055
     Dates: start: 20201121, end: 20201125
  2. CEFTRIAXONE. [Suspect]
     Active Substance: CEFTRIAXONE
     Indication: ANTIBIOTIC PROPHYLAXIS
     Dosage: 1 G
     Route: 042
     Dates: start: 20201119, end: 20201119
  3. DEXAMETHASONE. [Suspect]
     Active Substance: DEXAMETHASONE
     Indication: COVID-19
     Dosage: 10 MG, 1X/DAY
     Route: 042
     Dates: start: 20201119, end: 20201129
  4. NORADRENALINE (NORPINEPHRINE) [Suspect]
     Active Substance: NOREPINEPHRINE
     Indication: SHOCK SYMPTOM
     Dosage: UNK
     Route: 042
     Dates: start: 20201120, end: 20201203
  5. TAZOCILLINE [Suspect]
     Active Substance: PIPERACILLIN SODIUM\TAZOBACTAM SODIUM
     Indication: ANTIBIOTIC PROPHYLAXIS
     Dosage: 16 G, 1X/DAY
     Route: 042
     Dates: start: 20201122, end: 20201125
  6. SPIRAMYCINE [Suspect]
     Active Substance: SPIRAMYCIN
     Indication: ANTIBIOTIC PROPHYLAXIS
     Dosage: 9 KIU, 1X/DAY
     Route: 042
     Dates: start: 20201119, end: 20201120

REACTIONS (2)
  - Diabetes insipidus [Recovering/Resolving]
  - Off label use [Unknown]

NARRATIVE: CASE EVENT DATE: 20201122
